FAERS Safety Report 15123783 (Version 5)
Quarter: 2019Q3

REPORT INFORMATION
  Report Type: Report from Study
  Country: JP (occurrence: JP)
  Receive Date: 20180710
  Receipt Date: 20190711
  Transmission Date: 20191004
  Serious: Yes (Hospitalization, Other)
  Sender: FDA-Public Use
  Company Number: JP-ALEXION-A201808660

PATIENT

DRUGS (5)
  1. FOLIAMIN [Concomitant]
     Active Substance: FOLIC ACID
     Indication: PAROXYSMAL NOCTURNAL HAEMOGLOBINURIA
     Dosage: 20 MG, DAILY
     Route: 065
     Dates: start: 20170118
  2. FEBURIC [Concomitant]
     Active Substance: FEBUXOSTAT
     Indication: PROPHYLAXIS
     Dosage: 20 MG, DAILY
     Route: 048
     Dates: start: 20180614
  3. FEBURIC [Concomitant]
     Active Substance: FEBUXOSTAT
     Indication: HYPERURICAEMIA
     Dosage: 10 MG, DAILY
     Route: 048
  4. SOLIRIS [Suspect]
     Active Substance: ECULIZUMAB
     Indication: PAROXYSMAL NOCTURNAL HAEMOGLOBINURIA
     Dosage: 600 MG, QW
     Route: 042
     Dates: start: 20130710, end: 20130731
  5. SOLIRIS [Suspect]
     Active Substance: ECULIZUMAB
     Dosage: 900 MG, Q2W
     Route: 042
     Dates: start: 20130807

REACTIONS (12)
  - Moraxella infection [Recovered/Resolved]
  - Upper respiratory tract inflammation [Recovered/Resolved]
  - Anaemia [Recovered/Resolved]
  - Sinusitis [Recovered/Resolved]
  - Gout [Recovered/Resolved]
  - Bacteraemia [Recovered/Resolved]
  - Pharyngitis [Recovered/Resolved]
  - Iron overload [Not Recovered/Not Resolved]
  - Pharyngitis [Recovered/Resolved]
  - Gastroenteritis [Recovered/Resolved]
  - Upper respiratory tract inflammation [Recovered/Resolved]
  - Upper respiratory tract inflammation [Recovered/Resolved]

NARRATIVE: CASE EVENT DATE: 20180410
